FAERS Safety Report 15181990 (Version 2)
Quarter: 2018Q3

REPORT INFORMATION
  Report Type: Report from Study
  Country: None (occurrence: US)
  Receive Date: 20180723
  Receipt Date: 20180827
  Transmission Date: 20181010
  Serious: Yes (Death)
  Sender: FDA-Public Use
  Company Number: US-ABBVIE-18K-163-2427346-00

PATIENT
  Age: 85 Year
  Sex: Male

DRUGS (18)
  1. LISINOPRIL. [Concomitant]
     Active Substance: LISINOPRIL
     Indication: HYPERTENSION
  2. SIMVASTATIN. [Concomitant]
     Active Substance: SIMVASTATIN
     Indication: BLOOD CHOLESTEROL INCREASED
  3. CHONDROITIN [Concomitant]
     Active Substance: CHONDROITIN
     Indication: SUPPLEMENTATION THERAPY
  4. GLUCOSAMINE [Concomitant]
     Active Substance: GLUCOSAMINE
     Indication: SUPPLEMENTATION THERAPY
  5. TAMSULOSIN [Concomitant]
     Active Substance: TAMSULOSIN
     Indication: HYPERTENSION
  6. CALCIUM [Concomitant]
     Active Substance: CALCIUM
     Indication: MINERAL SUPPLEMENTATION
  7. CYANOCOBALAMIN. [Concomitant]
     Active Substance: CYANOCOBALAMIN
     Indication: VITAMIN SUPPLEMENTATION
  8. ASPIRIN. [Concomitant]
     Active Substance: ASPIRIN
     Indication: HYPERTENSION
  9. ALENDRONATE [Concomitant]
     Active Substance: ALENDRONATE SODIUM
     Indication: PRODUCT USED FOR UNKNOWN INDICATION
  10. GABAPENTIN. [Concomitant]
     Active Substance: GABAPENTIN
     Indication: PAIN
  11. OMEPRAZOLE. [Concomitant]
     Active Substance: OMEPRAZOLE
     Indication: GASTROOESOPHAGEAL REFLUX DISEASE
  12. VITAMIN C [Concomitant]
     Active Substance: ASCORBIC ACID
     Indication: VITAMIN SUPPLEMENTATION
  13. CRANBERRY. [Concomitant]
     Active Substance: CRANBERRY
     Indication: SUPPLEMENTATION THERAPY
  14. FIBER [Concomitant]
     Active Substance: PSYLLIUM HUSK
     Indication: IRRITABLE BOWEL SYNDROME
  15. NASOCORT [Concomitant]
     Active Substance: BUDESONIDE
     Indication: SINUSITIS
  16. HUMIRA [Suspect]
     Active Substance: ADALIMUMAB
     Indication: RHEUMATOID ARTHRITIS
     Route: 058
  17. LEVOTHYROXINE. [Concomitant]
     Active Substance: LEVOTHYROXINE
     Indication: HYPOTHYROIDISM
  18. VIBERZI [Concomitant]
     Active Substance: ELUXADOLINE
     Indication: IRRITABLE BOWEL SYNDROME

REACTIONS (1)
  - Death [Fatal]

NARRATIVE: CASE EVENT DATE: 201806
